FAERS Safety Report 5593237-X (Version None)
Quarter: 2008Q1

REPORT INFORMATION
  Report Type: 
  Country: None (occurrence: None)
  Receive Date: 20080115
  Receipt Date: 20080115
  Transmission Date: 20080703
  Serious: Yes (Hospitalization)
  Sender: FDA-Public Use
  Company Number: None

PATIENT
  Age: 1 Month
  Sex: Female
  Weight: 1.4 kg

DRUGS (2)
  1. NEOPROFEN 7MG [Suspect]
     Dosage: 7MG  ONCE  PO
     Route: 048
     Dates: start: 20071128, end: 20071201
  2. NEOPROFEN   3.5MG [Suspect]
     Dosage: 3.5MG  DAILY X 2  PO
     Route: 048

REACTIONS (1)
  - NECROTISING COLITIS [None]
